FAERS Safety Report 19513651 (Version 1)
Quarter: 2021Q3

REPORT INFORMATION
  Report Type: Spontaneous
  Country: US (occurrence: US)
  Receive Date: 20210709
  Receipt Date: 20210709
  Transmission Date: 20211014
  Serious: Yes (Other)
  Sender: FDA-Public Use
  Company Number: US-PFIZER INC-2021801032

PATIENT
  Age: 58 Year
  Sex: Female
  Weight: 88.45 kg

DRUGS (8)
  1. GLIMEPIRIDE. [Concomitant]
     Active Substance: GLIMEPIRIDE
     Indication: DIABETES MELLITUS
     Dosage: 2 MG, 1X/DAY (2MG AT BREAKFAST)
  2. MIRTAZAPINE. [Concomitant]
     Active Substance: MIRTAZAPINE
     Indication: DIABETES MELLITUS
     Dosage: 15 MG, 1X/DAY (15MG AT NIGHT)
  3. OXYBUTYNIN. [Concomitant]
     Active Substance: OXYBUTYNIN CHLORIDE
     Indication: VAGINAL DISORDER
     Dosage: 5 MG, 1X/DAY (5MG AT NIGHT)
  4. ROSUVASTATIN CALCIUM. [Concomitant]
     Active Substance: ROSUVASTATIN CALCIUM
     Indication: BLOOD CALCIUM ABNORMAL
     Dosage: 20 MG, 1X/DAY (20MG IN THE MORNING)
  5. PREMARIN [Suspect]
     Active Substance: ESTROGENS, CONJUGATED
     Indication: VULVOVAGINAL PRURITUS
     Dosage: UNK (APPLY PEA SIZED AMOUNT TO AFFECTED AREA 2?3 TIMES A WEEK)
     Dates: start: 20200308, end: 2021
  6. PREMARIN [Suspect]
     Active Substance: ESTROGENS, CONJUGATED
     Indication: DYSURIA
  7. LEVETIRACETAM. [Concomitant]
     Active Substance: LEVETIRACETAM
     Indication: SEIZURE
     Dosage: 1000 MG, 2X/DAY (1000MG TWICE DAILY)
  8. FEROSUL [Concomitant]
     Active Substance: FERROUS SULFATE
     Indication: BLOOD IRON ABNORMAL
     Dosage: 325 MG, 1X/DAY (325MG ONCE A DAY IN THE MORNING)

REACTIONS (1)
  - Vaginal haemorrhage [Unknown]
